FAERS Safety Report 22820091 (Version 7)
Quarter: 2024Q2

REPORT INFORMATION
  Report Type: Spontaneous
  Country: US (occurrence: US)
  Receive Date: 20230814
  Receipt Date: 20240624
  Transmission Date: 20240716
  Serious: No
  Sender: FDA-Public Use
  Company Number: US-BRISTOL-MYERS SQUIBB COMPANY-2023-100020

PATIENT
  Age: 75 Year
  Sex: Female
  Weight: 66.68 kg

DRUGS (2)
  1. REVLIMID [Suspect]
     Active Substance: LENALIDOMIDE
     Indication: Plasma cell myeloma
     Route: 048
     Dates: start: 20230701
  2. REVLIMID [Suspect]
     Active Substance: LENALIDOMIDE
     Route: 048
     Dates: start: 20231101

REACTIONS (9)
  - Rash [Not Recovered/Not Resolved]
  - Accidental overdose [Unknown]
  - Constipation [Unknown]
  - Joint stiffness [Unknown]
  - Joint noise [Unknown]
  - Skin wrinkling [Not Recovered/Not Resolved]
  - Sensory loss [Unknown]
  - Diarrhoea [Unknown]
  - Paraesthesia [Not Recovered/Not Resolved]

NARRATIVE: CASE EVENT DATE: 20230808
